FAERS Safety Report 18022635 (Version 8)
Quarter: 2021Q2

REPORT INFORMATION
  Report Type: Report from Study
  Country: CA (occurrence: CA)
  Receive Date: 20200714
  Receipt Date: 20210502
  Transmission Date: 20210717
  Serious: Yes (Death, Hospitalization, Other)
  Sender: FDA-Public Use
  Company Number: PHHY2016CA131270

PATIENT
  Age: 71 Year
  Sex: Male

DRUGS (5)
  1. AFINITOR [Concomitant]
     Active Substance: EVEROLIMUS
     Indication: PRODUCT USED FOR UNKNOWN INDICATION
     Dosage: 10 MG, QD
     Route: 048
     Dates: start: 20160823
  2. SANDOSTATIN LAR DEPOT [Suspect]
     Active Substance: OCTREOTIDE ACETATE
     Dosage: 60 MG, QMO (EVERY 4 WEEKS)
     Route: 030
     Dates: start: 20170307
  3. AFINITOR [Concomitant]
     Active Substance: EVEROLIMUS
     Dosage: 10 MG, EVERY 2 DAYS
     Route: 065
  4. SANDOSTATIN LAR DEPOT [Suspect]
     Active Substance: OCTREOTIDE ACETATE
     Indication: CARCINOID TUMOUR
     Dosage: 60 MG, QMO (EVERY 4 WEEKS)
     Route: 030
     Dates: start: 20150911, end: 20170110
  5. SANDOSTATIN LAR DEPOT [Suspect]
     Active Substance: OCTREOTIDE ACETATE
     Dosage: 30 MG, QMO (EVERY 4 WEEKS)
     Route: 030
     Dates: start: 20170207

REACTIONS (36)
  - Death [Fatal]
  - Unresponsive to stimuli [Unknown]
  - Skin discolouration [Unknown]
  - Anxiety [Unknown]
  - Arthralgia [Unknown]
  - Mood swings [Unknown]
  - Immune system disorder [Unknown]
  - Decreased appetite [Unknown]
  - Pain [Unknown]
  - Second primary malignancy [Unknown]
  - Joint swelling [Unknown]
  - Blood test abnormal [Unknown]
  - Cognitive disorder [Unknown]
  - Abdominal pain [Unknown]
  - Weight decreased [Unknown]
  - Aphasia [Not Recovered/Not Resolved]
  - Bone cancer [Unknown]
  - Musculoskeletal chest pain [Unknown]
  - Nausea [Unknown]
  - Lethargy [Unknown]
  - Apnoea [Recovered/Resolved]
  - Hepatic cancer [Unknown]
  - Blood pressure diastolic decreased [Recovered/Resolved]
  - Confusional state [Unknown]
  - Fatigue [Unknown]
  - Platelet count decreased [Unknown]
  - Pneumonia [Unknown]
  - Heart rate decreased [Unknown]
  - Neutrophil count decreased [Unknown]
  - Oral herpes [Unknown]
  - Diarrhoea [Not Recovered/Not Resolved]
  - Incorrect dose administered [Unknown]
  - Communication disorder [Unknown]
  - Cancer pain [Unknown]
  - Feeling hot [Unknown]
  - Hyperhidrosis [Unknown]

NARRATIVE: CASE EVENT DATE: 20160921
